FAERS Safety Report 8344923-X (Version None)
Quarter: 2012Q2

REPORT INFORMATION
  Report Type: 
  Country: None (occurrence: None)
  Receive Date: 20120508
  Receipt Date: 20090529
  Transmission Date: 20120825
  Serious: Yes (Other)
  Sender: FDA-Public Use
  Company Number: US-TEVA-2009006031

PATIENT
  Age: 22 Year
  Sex: Female

DRUGS (2)
  1. TRAMADOL HYDROCHLORIDE [Concomitant]
     Dosage: 200 MILLIGRAM;
  2. AMRIX [Suspect]
     Indication: MUSCLE SPASMS
     Dosage: 30 MILLIGRAM;
     Route: 048
     Dates: end: 20090501

REACTIONS (1)
  - CONVULSION [None]
